FAERS Safety Report 23258098 (Version 1)
Quarter: 2023Q4

REPORT INFORMATION
  Report Type: Spontaneous
  Country: US (occurrence: None)
  Receive Date: 20231201
  Receipt Date: 20231201
  Transmission Date: 20240110
  Serious: Yes (Hospitalization)
  Sender: FDA-Public Use
  Company Number: None

PATIENT
  Sex: Female

DRUGS (1)
  1. NEULASTA [Suspect]
     Active Substance: PEGFILGRASTIM
     Indication: Neurofibromatosis
     Dosage: OTHER FREQUENCY : DOSE 1 OF 21D CYCL;?INJECT 0.6 ML (6 MG) UNDER THE SKIN ONCE FOR 1 DOSE OF A 21 DA
     Route: 058
     Dates: start: 202311

REACTIONS (2)
  - Respiratory syncytial virus infection [None]
  - Pneumonia [None]
